FAERS Safety Report 25281715 (Version 4)
Quarter: 2025Q2

REPORT INFORMATION
  Report Type: Spontaneous
  Country: IT (occurrence: IT)
  Receive Date: 20250508
  Receipt Date: 20250530
  Transmission Date: 20250716
  Serious: Yes (Other)
  Sender: AUROBINDO
  Company Number: IT-UCBSA-2025022814

PATIENT
  Age: 21 Year
  Sex: Male

DRUGS (6)
  1. LACOSAMIDE [Suspect]
     Active Substance: LACOSAMIDE
     Indication: Partial seizures
     Dosage: 300 MILLIGRAM, ONCE A DAY (150 MILLIGRAM, 2X/DAY (BID))
     Route: 065
  2. LEVETIRACETAM [Suspect]
     Active Substance: LEVETIRACETAM
     Indication: Seizure
     Route: 065
  3. LEVETIRACETAM [Suspect]
     Active Substance: LEVETIRACETAM
     Indication: Partial seizures
  4. BECLOMETHASONE DIPROPIONATE [Concomitant]
     Active Substance: BECLOMETHASONE DIPROPIONATE
     Indication: Asthma
     Route: 065
  5. FORMOTEROL FUMARATE DIHYDRATE [Concomitant]
     Active Substance: FORMOTEROL FUMARATE DIHYDRATE
     Indication: Asthma
     Route: 065
  6. MINOCYCLINE [Concomitant]
     Active Substance: MINOCYCLINE HYDROCHLORIDE
     Indication: Product used for unknown indication
     Dosage: 100 MILLIGRAM, ONCE A DAY (100 MG, QD, FOR 3 MONTHS)
     Route: 065

REACTIONS (10)
  - Acne [Recovered/Resolved]
  - Focal dyscognitive seizures [Unknown]
  - Keloid scar [Recovering/Resolving]
  - Drug ineffective [Unknown]
  - Rash pustular [Recovering/Resolving]
  - Acne cystic [Recovering/Resolving]
  - Rash papular [Recovered/Resolved]
  - Purulent discharge [Recovered/Resolved]
  - Bloody discharge [Recovered/Resolved]
  - Discomfort [Recovered/Resolved]
